FAERS Safety Report 5538714-2 (Version None)
Quarter: 2007Q4

REPORT INFORMATION
  Report Type: 
  Country: None (occurrence: None)
  Receive Date: 20071208
  Receipt Date: 20070329
  Transmission Date: 20080405
  Serious: No
  Sender: FDA-Public Use
  Company Number: US-AMGEN-KDL217635

PATIENT
  Sex: Female

DRUGS (4)
  1. ENBREL [Suspect]
     Indication: RHEUMATOID ARTHRITIS
     Route: 058
     Dates: start: 20000303
  2. METHOTREXATE [Concomitant]
     Route: 048
     Dates: start: 19900101
  3. SULFASALAZINE [Concomitant]
     Route: 048
  4. RADIATION THERAPY [Concomitant]

REACTIONS (1)
  - WOUND INFECTION [None]
